FAERS Safety Report 4547728-0 (Version None)
Quarter: 2005Q1

REPORT INFORMATION
  Report Type: 
  Country: None (occurrence: None)
  Receive Date: 20050107
  Receipt Date: 20041222
  Transmission Date: 20050727
  Serious: Yes (Hospitalization)
  Sender: FDA-Public Use
  Company Number: US-MERCK-0412USA02767

PATIENT
  Age: 5 Year
  Sex: Male

DRUGS (2)
  1. PERIACTIN [Suspect]
     Route: 048
     Dates: start: 20040101, end: 20040101
  2. [THERAPY UNSPECIFIED] [Concomitant]
     Route: 065

REACTIONS (2)
  - ASCITES [None]
  - CEREBROSPINAL FLUID LEAKAGE [None]
